FAERS Safety Report 12204857 (Version 1)
Quarter: 2016Q1

REPORT INFORMATION
  Report Type: Spontaneous
  Country: GB (occurrence: GB)
  Receive Date: 20160323
  Receipt Date: 20160323
  Transmission Date: 20160526
  Serious: Yes (Other)
  Sender: FDA-Public Use
  Company Number: GB-TEVA-645299ACC

PATIENT
  Age: 66 Year
  Sex: Male
  Weight: 90.2 kg

DRUGS (3)
  1. DIGOXIN. [Concomitant]
     Active Substance: DIGOXIN
     Dosage: 250 MICROGRAM DAILY; 250 MICROGRAM IN THE MORNING
  2. WARFARIN [Suspect]
     Active Substance: WARFARIN
     Dosage: VARIED
     Route: 048
     Dates: start: 201412, end: 20160120
  3. RAMIPRIL. [Concomitant]
     Active Substance: RAMIPRIL
     Dosage: 10 MILLIGRAM DAILY;

REACTIONS (2)
  - Rash generalised [Recovered/Resolved]
  - Loss of libido [Recovered/Resolved]

NARRATIVE: CASE EVENT DATE: 201412
